FAERS Safety Report 12943279 (Version 2)
Quarter: 2016Q4

REPORT INFORMATION
  Report Type: Spontaneous
  Country: US (occurrence: US)
  Receive Date: 20161115
  Receipt Date: 20161116
  Transmission Date: 20170207
  Serious: Yes (Other)
  Sender: FDA-Public Use
  Company Number: US-PFIZER INC-2016525790

PATIENT
  Age: 57 Year
  Sex: Female
  Weight: 81 kg

DRUGS (1)
  1. LYRICA [Suspect]
     Active Substance: PREGABALIN
     Indication: TYPE 2 DIABETES MELLITUS
     Dosage: UNK, 1X/DAY
     Route: 048

REACTIONS (9)
  - Rheumatoid arthritis [Unknown]
  - Diabetic foot [Unknown]
  - Pain in extremity [Not Recovered/Not Resolved]
  - Glycosylated haemoglobin increased [Unknown]
  - Suicidal ideation [Unknown]
  - Product use issue [Unknown]
  - Anxiety [Unknown]
  - Crying [Unknown]
  - Blood glucose increased [Unknown]
